FAERS Safety Report 18292173 (Version 4)
Quarter: 2020Q4

REPORT INFORMATION
  Report Type: Spontaneous
  Country: US (occurrence: US)
  Receive Date: 20200922
  Receipt Date: 20201109
  Transmission Date: 20210113
  Serious: Yes (Hospitalization)
  Sender: FDA-Public Use
  Company Number: US-BIOGEN-2020BI00924424

PATIENT
  Sex: Female

DRUGS (6)
  1. MULTIVITAMIN [Concomitant]
     Active Substance: VITAMINS
     Indication: ATRIAL FIBRILLATION
     Route: 065
  2. AVONEX PEN [Suspect]
     Active Substance: INTERFERON BETA-1A
     Route: 065
  3. AVONEX PEN [Suspect]
     Active Substance: INTERFERON BETA-1A
  4. VITAMIN E [Concomitant]
     Active Substance: .ALPHA.-TOCOPHEROL
     Indication: ATRIAL FIBRILLATION
     Route: 065
  5. AVONEX PEN [Suspect]
     Active Substance: INTERFERON BETA-1A
  6. AVONEX PEN [Suspect]
     Active Substance: INTERFERON BETA-1A
     Indication: MULTIPLE SCLEROSIS
     Route: 065
     Dates: start: 20120522

REACTIONS (13)
  - Fatigue [Unknown]
  - Constipation [Recovered/Resolved]
  - Gait disturbance [Unknown]
  - Chest discomfort [Not Recovered/Not Resolved]
  - Confusional state [Recovered/Resolved]
  - Pain in extremity [Unknown]
  - Influenza like illness [Unknown]
  - Atrial fibrillation [Not Recovered/Not Resolved]
  - Visual impairment [Unknown]
  - Fluid intake reduced [Recovered/Resolved]
  - Off label use [Not Recovered/Not Resolved]
  - Back pain [Unknown]
  - Peripheral coldness [Unknown]
